FAERS Safety Report 5613343-0 (Version None)
Quarter: 2008Q1

REPORT INFORMATION
  Report Type: 
  Country: None (occurrence: None)
  Receive Date: 20080129
  Receipt Date: 20080110
  Transmission Date: 20080703
  Serious: Yes (Hospitalization)
  Sender: FDA-Public Use
  Company Number: DSA_31331_2008

PATIENT
  Age: 73 Year
  Sex: Male

DRUGS (5)
  1. DILTIAZEM HCL [Suspect]
     Indication: HYPERTENSION
     Dosage: (300 MG ORAL)
     Route: 048
     Dates: start: 20071012, end: 20071101
  2. PANTOPRAZOLE SODIUM [Suspect]
     Indication: DRUG USE FOR UNKNOWN INDICATION
     Dosage: (40 MG ORAL
     Route: 048
     Dates: start: 20071012, end: 20071018
  3. PIROXICAM [Suspect]
     Indication: SCIATICA
     Dosage: (DF ORAL)
     Route: 048
     Dates: start: 20071012, end: 20071101
  4. PROPOXYPHENE HCL AND ACETAMINOPHEN [Suspect]
     Indication: SCIATICA
     Dosage: (DF ORAL)
     Route: 048
     Dates: start: 20071012, end: 20071101
  5. MIOREL (THIOCHOLCHICOSIDE) [Suspect]
     Dosage: (4 MG ORAL)
     Route: 048
     Dates: start: 20071012, end: 20071101

REACTIONS (2)
  - CHOLESTASIS [None]
  - DRUG RASH WITH EOSINOPHILIA AND SYSTEMIC SYMPTOMS [None]
